FAERS Safety Report 8319298-2 (Version None)
Quarter: 2012Q2

REPORT INFORMATION
  Report Type: 
  Country: None (occurrence: None)
  Receive Date: 20120427
  Receipt Date: 20120418
  Transmission Date: 20120825
  Serious: Yes (Disabling, Other)
  Sender: FDA-Public Use
  Company Number: US-JNJFOC-20120412647

PATIENT
  Age: 60 Year
  Sex: Female
  Weight: 51.7 kg

DRUGS (8)
  1. NICOTROL [Suspect]
     Indication: COUGH
     Route: 065
  2. NICOTROL [Suspect]
     Indication: BRONCHITIS
     Route: 065
  3. NEURONTIN [Suspect]
     Indication: PRODUCT USED FOR UNKNOWN INDICATION
     Route: 048
  4. XANAX [Suspect]
     Indication: NERVOUSNESS
     Route: 048
  5. PERCOCET [Concomitant]
     Indication: PAIN
     Route: 065
  6. PREMPRO [Suspect]
     Indication: MENOPAUSE
     Route: 048
  7. LYRICA [Suspect]
     Indication: NEURALGIA
     Route: 048
     Dates: start: 20120301, end: 20120401
  8. XANAX [Suspect]
     Indication: PANIC ATTACK
     Route: 048

REACTIONS (10)
  - NERVE INJURY [None]
  - GAIT DISTURBANCE [None]
  - VISUAL IMPAIRMENT [None]
  - PRURITUS GENERALISED [None]
  - RASH PAPULAR [None]
  - RASH PUSTULAR [None]
  - RASH [None]
  - SKIN LESION [None]
  - OFF LABEL USE [None]
  - DIZZINESS [None]
